FAERS Safety Report 9272080 (Version 1)
Quarter: 2013Q2

REPORT INFORMATION
  Report Type: Spontaneous
  Country: US (occurrence: US)
  Receive Date: 20130506
  Receipt Date: 20130506
  Transmission Date: 20140414
  Serious: No
  Sender: FDA-Public Use
  Company Number: US-PFIZER INC-2013136001

PATIENT
  Age: 80 Year
  Sex: Male
  Weight: 100 kg

DRUGS (3)
  1. VIAGRA [Suspect]
     Indication: ERECTILE DYSFUNCTION
     Dosage: 50 MG, SINGLE
     Route: 048
     Dates: start: 201304, end: 201304
  2. ASPIRIN [Concomitant]
     Dosage: 162 MG, 1X/DAY
  3. PROTONIX [Concomitant]
     Indication: GASTROOESOPHAGEAL REFLUX DISEASE
     Dosage: UNK, 1X/DAY
     Route: 048

REACTIONS (1)
  - Drug ineffective [Unknown]
